FAERS Safety Report 23132929 (Version 1)
Quarter: 2023Q4

REPORT INFORMATION
  Report Type: Spontaneous
  Country: CN (occurrence: CN)
  Receive Date: 20231101
  Receipt Date: 20231101
  Transmission Date: 20240109
  Serious: Yes (Other)
  Sender: FDA-Public Use
  Company Number: CN-002147023-NVSC2023CN230802

PATIENT
  Age: 39 Year
  Sex: Male
  Weight: 60 kg

DRUGS (1)
  1. TEGRETOL [Suspect]
     Active Substance: CARBAMAZEPINE
     Indication: Dizziness
     Dosage: 1 DOSAGE FORM, BID
     Route: 048
     Dates: start: 20231002, end: 20231008

REACTIONS (4)
  - Hypersensitivity [Unknown]
  - Rash [Recovered/Resolved]
  - Pyrexia [Unknown]
  - Product use in unapproved indication [Unknown]

NARRATIVE: CASE EVENT DATE: 20231008
